FAERS Safety Report 16223880 (Version 3)
Quarter: 2019Q2

REPORT INFORMATION
  Report Type: Spontaneous
  Country: JP (occurrence: JP)
  Receive Date: 20190422
  Receipt Date: 20190614
  Transmission Date: 20190711
  Serious: Yes (Death, Other)
  Sender: FDA-Public Use
  Company Number: JP-AMGEN-JPNSP2019063716

PATIENT
  Age: 71 Year
  Sex: Male

DRUGS (10)
  1. SENNOSIDE A+B [Concomitant]
     Active Substance: SENNOSIDES A AND B
     Indication: CONSTIPATION
     Dosage: 24 MILLIGRAM
  2. CELECOX [Concomitant]
     Active Substance: CELECOXIB
     Dosage: 100 MILLIGRAM, BID
  3. AMBROXOL HYDROCHLORIDE [Concomitant]
     Active Substance: AMBROXOL HYDROCHLORIDE
     Dosage: 45 MILLIGRAM, QD
  4. EVENITY [Suspect]
     Active Substance: ROMOSOZUMAB-AQQG
     Indication: OSTEOPOROSIS
     Dosage: 210 MILLIGRAM
     Route: 058
     Dates: start: 20190408, end: 20190408
  5. KLARICID [CLARITHROMYCIN] [Concomitant]
     Dosage: 600 MILLIGRAM, QD
  6. SPIRIVA [Concomitant]
     Active Substance: TIOTROPIUM BROMIDE MONOHYDRATE
     Dosage: 5 MICROGRAM, QD MORNING
  7. HUSCODE [Concomitant]
     Active Substance: CHLORPHENIRAMINE MALEATE\DIHYDROCODEINE PHOSPHATE\METHYLEPHEDRINE HYDROCHLORIDE, DL-
     Dosage: 10 MILLILITER, TID
  8. NITOROL [Concomitant]
     Active Substance: ISOSORBIDE DINITRATE
     Indication: MYOCARDIAL INFARCTION
     Dosage: 5 MILLIGRAM
  9. OPSO [Concomitant]
     Active Substance: MORPHINE HYDROCHLORIDE
     Indication: COUGH
     Dosage: 15 MILLIGRAM
  10. RIFAMPICIN [Concomitant]
     Active Substance: RIFAMPIN
     Dosage: 450 MILLIGRAM, QD

REACTIONS (1)
  - Cardio-respiratory arrest [Fatal]

NARRATIVE: CASE EVENT DATE: 20190409
